FAERS Safety Report 4630683-2 (Version None)
Quarter: 2005Q2

REPORT INFORMATION
  Report Type: 
  Country: None (occurrence: None)
  Receive Date: 20050406
  Receipt Date: 20050401
  Transmission Date: 20051028
  Serious: Yes (Death)
  Sender: FDA-Public Use
  Company Number: B0376415A

PATIENT

DRUGS (2)
  1. ALKERAN [Suspect]
     Dosage: ORAL
  2. PREDNISONE [Concomitant]

REACTIONS (1)
  - SUDDEN CARDIAC DEATH [None]
